FAERS Safety Report 19684445 (Version 11)
Quarter: 2022Q1

REPORT INFORMATION
  Report Type: Other
  Country: CA (occurrence: CA)
  Receive Date: 20210811
  Receipt Date: 20220323
  Transmission Date: 20220423
  Serious: Yes (Other)
  Sender: FDA-Public Use
  Company Number: CA-002147023-NVSC2021CA054698

PATIENT
  Age: 60 Year
  Sex: Male

DRUGS (12)
  1. XOLAIR [Suspect]
     Active Substance: OMALIZUMAB
     Indication: Chronic spontaneous urticaria
     Route: 058
     Dates: start: 20200908
  2. XOLAIR [Suspect]
     Active Substance: OMALIZUMAB
     Route: 054
     Dates: start: 20200908
  3. XOLAIR [Suspect]
     Active Substance: OMALIZUMAB
     Route: 058
     Dates: start: 20201006
  4. XOLAIR [Suspect]
     Active Substance: OMALIZUMAB
     Route: 058
     Dates: start: 20210616
  5. XOLAIR [Suspect]
     Active Substance: OMALIZUMAB
     Route: 058
  6. XOLAIR [Suspect]
     Active Substance: OMALIZUMAB
     Route: 058
  7. XOLAIR [Suspect]
     Active Substance: OMALIZUMAB
     Route: 058
  8. XOLAIR [Suspect]
     Active Substance: OMALIZUMAB
     Route: 058
  9. BENADRYL [Concomitant]
     Active Substance: DIPHENHYDRAMINE HYDROCHLORIDE
     Indication: Idiopathic urticaria
     Dosage: 1 DOSAGE FORM, QD
     Route: 048
  10. BILASTINE [Concomitant]
     Active Substance: BILASTINE
     Indication: Idiopathic urticaria
     Dosage: 1 DOSAGE FORM, BID
     Route: 048
  11. SINGULAIR [Concomitant]
     Active Substance: MONTELUKAST SODIUM
     Indication: Idiopathic urticaria
     Dosage: 1 DOSAGE FORM, QD
     Route: 048
  12. CETIRIZINE HYDROCHLORIDE [Concomitant]
     Active Substance: CETIRIZINE HYDROCHLORIDE
     Indication: Idiopathic urticaria
     Dosage: 1 DOSAGE FORM, QD
     Route: 048

REACTIONS (31)
  - Hypertension [Unknown]
  - Anaphylactic reaction [Unknown]
  - Erythema [Unknown]
  - Sleep disorder [Unknown]
  - Asthenia [Not Recovered/Not Resolved]
  - Flushing [Not Recovered/Not Resolved]
  - Asthma [Unknown]
  - Memory impairment [Unknown]
  - Musculoskeletal chest pain [Unknown]
  - Fatigue [Not Recovered/Not Resolved]
  - Chest pain [Not Recovered/Not Resolved]
  - Hypersomnia [Not Recovered/Not Resolved]
  - Cartilage injury [Unknown]
  - Lymphatic disorder [Unknown]
  - Pruritus [Unknown]
  - Immune system disorder [Unknown]
  - Influenza [Unknown]
  - Laryngeal discomfort [Unknown]
  - Blood immunoglobulin A increased [Unknown]
  - Bacterial infection [Unknown]
  - Chronic spontaneous urticaria [Unknown]
  - Dry eye [Unknown]
  - Nasopharyngitis [Unknown]
  - Pain [Not Recovered/Not Resolved]
  - Rhinorrhoea [Unknown]
  - Vocal cord dysfunction [Unknown]
  - Headache [Not Recovered/Not Resolved]
  - Blood immunoglobulin E increased [Unknown]
  - Attention deficit hyperactivity disorder [Unknown]
  - Off label use [Unknown]
  - Drug ineffective [Unknown]

NARRATIVE: CASE EVENT DATE: 20210401
